FAERS Safety Report 7902447-5 (Version None)
Quarter: 2011Q4

REPORT INFORMATION
  Report Type: 
  Country: None (occurrence: None)
  Receive Date: 20111108
  Receipt Date: 20111107
  Transmission Date: 20120403
  Serious: Yes (Other)
  Sender: FDA-Public Use
  Company Number: US-PFIZER INC-2011272331

PATIENT
  Sex: Female
  Weight: 56.689 kg

DRUGS (1)
  1. ZOLOFT [Suspect]
     Indication: DEPRESSION
     Dosage: 50 MG, 1X/DAY
     Route: 048
     Dates: start: 20010101, end: 20110601

REACTIONS (3)
  - OSTEOPENIA [None]
  - MUSCLE SPASMS [None]
  - BONE DENSITY DECREASED [None]
